FAERS Safety Report 5848082-4 (Version None)
Quarter: 2008Q3

REPORT INFORMATION
  Report Type: 
  Country: None (occurrence: None)
  Receive Date: 20080814
  Receipt Date: 20080814
  Transmission Date: 20090109
  Serious: No
  Sender: FDA-Public Use
  Company Number: None

PATIENT
  Sex: Female
  Weight: 52.6173 kg

DRUGS (8)
  1. INVEGA [Suspect]
     Indication: PSYCHOTIC DISORDER
     Dosage: 3 MG QHS ORAL
     Route: 048
     Dates: start: 20080416, end: 20080428
  2. SEROQUEL [Concomitant]
  3. FIBERBASICS [Concomitant]
  4. VITAMIN [Concomitant]
  5. ZINC [Concomitant]
  6. GABAPENTIN [Concomitant]
  7. LEXAPRO [Concomitant]
  8. COLACE [Concomitant]

REACTIONS (3)
  - DYSKINESIA [None]
  - DYSTONIA [None]
  - TARDIVE DYSKINESIA [None]
